FAERS Safety Report 8696286 (Version 3)
Quarter: 2012Q4

REPORT INFORMATION
  Report Type: 
  Country: US (occurrence: US)
  Receive Date: 20120801
  Receipt Date: 20120914
  Transmission Date: 20130627
  Serious: No
  Sender: FDA-Public Use
  Company Number: US-009507513-1207USA002077

PATIENT

DRUGS (1)
  1. IMPLANON [Suspect]
     Dosage: UNK
     Dates: start: 20120703

REACTIONS (6)
  - Device difficult to use [Unknown]
  - Device dislocation [Unknown]
  - Complication of device insertion [Unknown]
  - Medical device complication [Unknown]
  - Nausea [Unknown]
  - Dizziness [Unknown]
